FAERS Safety Report 4522379-2 (Version None)
Quarter: 2004Q4

REPORT INFORMATION
  Report Type: 
  Country: None (occurrence: None)
  Receive Date: 20041209
  Receipt Date: 20041203
  Transmission Date: 20050328
  Serious: Yes (Hospitalization)
  Sender: FDA-Public Use
  Company Number: FR-GLAXOSMITHKLINE-B0359354A

PATIENT
  Age: 76 Year
  Sex: Female

DRUGS (3)
  1. CLAMOXYL [Suspect]
     Dosage: 1G SINGLE DOSE
     Route: 048
     Dates: start: 20041014, end: 20041014
  2. LEVOTHYROX [Concomitant]
     Route: 065
  3. ARICEPT [Concomitant]
     Route: 065

REACTIONS (5)
  - ECCHYMOSIS [None]
  - HOT FLUSH [None]
  - PRURITUS [None]
  - RASH [None]
  - RASH ERYTHEMATOUS [None]
